FAERS Safety Report 5955002-0 (Version None)
Quarter: 2008Q4

REPORT INFORMATION
  Report Type: 
  Country: None (occurrence: None)
  Receive Date: 20081113
  Receipt Date: 20081113
  Transmission Date: 20090506
  Serious: Yes (Other)
  Sender: FDA-Public Use
  Company Number: None

PATIENT
  Age: 30 Year
  Sex: Female
  Weight: 51.7101 kg

DRUGS (1)
  1. DEPO-PROVERA [Suspect]
     Dosage: EVERY 3 MONTHS IM
     Route: 030
     Dates: start: 19980601, end: 20070511

REACTIONS (6)
  - FEELING ABNORMAL [None]
  - OVARIAN DISORDER [None]
  - PAIN [None]
  - RESORPTION BONE INCREASED [None]
  - SWELLING [None]
  - VAGINAL HAEMORRHAGE [None]
